FAERS Safety Report 19367001 (Version 1)
Quarter: 2021Q2

REPORT INFORMATION
  Report Type: Spontaneous
  Country: US (occurrence: US)
  Receive Date: 20210603
  Receipt Date: 20210603
  Transmission Date: 20210717
  Serious: No
  Sender: FDA-Public Use
  Company Number: NVSC2021US125266

PATIENT
  Age: 80 Year
  Sex: Male

DRUGS (2)
  1. VOLTAREN [Suspect]
     Active Substance: DICLOFENAC SODIUM
     Indication: PRODUCT USED FOR UNKNOWN INDICATION
     Dosage: UNK
     Route: 065
     Dates: start: 20210124
  2. VOLTAREN [Suspect]
     Active Substance: DICLOFENAC SODIUM
     Dosage: UNK
     Route: 065
     Dates: start: 20210126

REACTIONS (3)
  - Product use in unapproved indication [Recovering/Resolving]
  - Therapeutic response unexpected [Unknown]
  - Product administered at inappropriate site [Recovering/Resolving]

NARRATIVE: CASE EVENT DATE: 20210124
